FAERS Safety Report 9629512 (Version 1)
Quarter: 2013Q4

REPORT INFORMATION
  Report Type: Spontaneous
  Country: US (occurrence: US)
  Receive Date: 20131017
  Receipt Date: 20131017
  Transmission Date: 20140711
  Serious: Yes (Hospitalization)
  Sender: FDA-Public Use
  Company Number: US-MALLINCKRODT-T201304582

PATIENT
  Age: 61 Year
  Sex: Female

DRUGS (1)
  1. OXYCODONE [Suspect]
     Indication: PRODUCT USED FOR UNKNOWN INDICATION
     Dosage: 60 MG, UNK
     Route: 048

REACTIONS (9)
  - Overdose [Unknown]
  - Right ventricular failure [Recovered/Resolved]
  - Shock [Recovered/Resolved]
  - Renal failure acute [Recovered/Resolved]
  - Acute hepatic failure [Recovered/Resolved]
  - Dilatation ventricular [Not Recovered/Not Resolved]
  - Metabolic acidosis [Unknown]
  - Troponin I increased [Recovering/Resolving]
  - Respiratory failure [Recovered/Resolved]
